FAERS Safety Report 16838009 (Version 1)
Quarter: 2019Q3

REPORT INFORMATION
  Report Type: Spontaneous
  Country: GB (occurrence: GB)
  Receive Date: 20190923
  Receipt Date: 20190923
  Transmission Date: 20191005
  Serious: Yes (Hospitalization)
  Sender: FDA-Public Use
  Company Number: GB-TEVA-2019-GB-1110331

PATIENT
  Age: 37 Year
  Sex: Female
  Weight: 78 kg

DRUGS (1)
  1. CAPECITABINE. [Suspect]
     Active Substance: CAPECITABINE
     Indication: BREAST CANCER METASTATIC
     Dosage: 2500 MG
     Route: 048
     Dates: start: 20190719, end: 20190802

REACTIONS (2)
  - Pancytopenia [Recovering/Resolving]
  - Alopecia totalis [Recovering/Resolving]

NARRATIVE: CASE EVENT DATE: 20190802
